FAERS Safety Report 8992303 (Version 1)
Quarter: 2012Q4

REPORT INFORMATION
  Report Type: 
  Country: JP (occurrence: JP)
  Receive Date: 20121231
  Receipt Date: 20121231
  Transmission Date: 20130627
  Serious: Yes (Hospitalization)
  Sender: FDA-Public Use
  Company Number: JP-OTSUKA-JP-2011-10568

PATIENT
  Age: 49 Year
  Sex: Male
  Weight: 76.7 kg

DRUGS (7)
  1. SAMSCA [Suspect]
     Indication: CARDIAC FAILURE
     Dosage: 7.5 Mg milligram(s), qd
     Route: 048
     Dates: start: 20110325, end: 20110329
  2. LASIX [Suspect]
     Indication: CARDIAC FAILURE
     Dosage: 40 Mg milligram(s), qd
     Route: 048
  3. ARTIST [Concomitant]
     Indication: CARDIAC FAILURE
     Dosage: 1.25 Mg milligram(s), bid
     Route: 048
     Dates: start: 20110319, end: 20110320
  4. BLOPRESS [Concomitant]
     Indication: CARDIAC FAILURE
     Dosage: 4 Mg milligram(s), bid
     Route: 048
  5. ALDACTONE A [Concomitant]
     Indication: CARDIAC FAILURE
     Dosage: 25 Mg milligram(s), qd
     Route: 048
  6. GLACTIV [Concomitant]
     Indication: DIABETES MELLITUS
     Dosage: 25 Mg milligram(s), qd
     Route: 048
  7. ZYLORIC [Concomitant]
     Indication: HYPERURICAEMIA
     Dosage: 100 Mg milligram(s), qd
     Route: 048

REACTIONS (1)
  - Cerebral infarction [Recovering/Resolving]
